FAERS Safety Report 9099372 (Version 3)
Quarter: 2014Q1

REPORT INFORMATION
  Report Type: Spontaneous
  Country: US (occurrence: US)
  Receive Date: 20130214
  Receipt Date: 20140307
  Transmission Date: 20141002
  Serious: No
  Sender: FDA-Public Use
  Company Number: US-PFIZER INC-2013056957

PATIENT
  Age: 71 Year
  Sex: Female
  Weight: 77.1 kg

DRUGS (5)
  1. LYRICA [Suspect]
     Indication: DIABETIC NEUROPATHY
     Dosage: 200 MG, 3X/DAY
     Route: 048
     Dates: start: 201301
  2. LYRICA [Suspect]
     Dosage: 150 MG, 2X/DAY
     Route: 048
     Dates: start: 2013
  3. LYRICA [Suspect]
     Dosage: 150 MG, 3X/DAY
     Route: 048
     Dates: start: 2013, end: 201402
  4. NABUMETONE [Concomitant]
     Indication: OSTEOPOROSIS
     Dosage: 500 MG, 2X/DAY
  5. GABAPENTIN [Concomitant]
     Dosage: UNK

REACTIONS (4)
  - Intentional drug misuse [Unknown]
  - Neuropathy peripheral [Unknown]
  - Feeling abnormal [Unknown]
  - Somnolence [Unknown]
